FAERS Safety Report 6199976-4 (Version None)
Quarter: 2009Q2

REPORT INFORMATION
  Report Type: 
  Country: None (occurrence: None)
  Receive Date: 20090522
  Receipt Date: 20090515
  Transmission Date: 20091009
  Serious: Yes (Hospitalization)
  Sender: FDA-Public Use
  Company Number: US-AVENTIS-200914250US

PATIENT
  Sex: Female

DRUGS (3)
  1. LANTUS [Suspect]
     Route: 058
  2. HUMALOG [Concomitant]
  3. ASPIRIN [Concomitant]
     Dosage: DOSE: UNK

REACTIONS (1)
  - URINARY TRACT INFECTION [None]
